FAERS Safety Report 17362266 (Version 2)
Quarter: 2020Q1

REPORT INFORMATION
  Report Type: Report from Study
  Country: BE (occurrence: BE)
  Receive Date: 20200203
  Receipt Date: 20200210
  Transmission Date: 20200409
  Serious: Yes (Hospitalization, Other)
  Sender: FDA-Public Use
  Company Number: BE-JNJFOC-20200130545

PATIENT
  Age: 73 Year
  Sex: Male

DRUGS (4)
  1. RIVAROXABAN [Suspect]
     Active Substance: RIVAROXABAN
     Indication: CORONARY ARTERY DISEASE
     Dosage: UNK
     Route: 048
  2. RIVAROXABAN [Suspect]
     Active Substance: RIVAROXABAN
     Indication: PERIPHERAL ARTERIAL OCCLUSIVE DISEASE
  3. CODEINE [Suspect]
     Active Substance: CODEINE
     Indication: PRODUCT USED FOR UNKNOWN INDICATION
     Dosage: UNK
     Route: 065
  4. RIVAROXABAN [Suspect]
     Active Substance: RIVAROXABAN
     Indication: CARDIOVASCULAR EVENT PROPHYLAXIS

REACTIONS (6)
  - Lower gastrointestinal haemorrhage [Unknown]
  - Urinary retention [Unknown]
  - Gastrointestinal motility disorder [Unknown]
  - Prostatitis [Unknown]
  - Prostatitis [Unknown]
  - Faecaloma [Unknown]

NARRATIVE: CASE EVENT DATE: 20191215
